FAERS Safety Report 14260390 (Version 1)
Quarter: 2017Q4

REPORT INFORMATION
  Report Type: Report from Study
  Country: US (occurrence: US)
  Receive Date: 20171207
  Receipt Date: 20171207
  Transmission Date: 20180321
  Serious: Yes (Hospitalization)
  Sender: FDA-Public Use
  Company Number: US-MYLANLABS-2017M1076040

PATIENT
  Age: 68 Year
  Sex: Female
  Weight: 87 kg

DRUGS (10)
  1. CYTARABINE MYLAN [Suspect]
     Active Substance: CYTARABINE
     Indication: ACUTE MYELOID LEUKAEMIA
     Dosage: 100 MG/M2, QD
     Route: 042
     Dates: start: 20170411, end: 20170417
  2. AMOXICILLIN. [Concomitant]
     Active Substance: AMOXICILLIN
     Indication: PRODUCT USED FOR UNKNOWN INDICATION
     Dosage: UNK
  3. POSACONAZOLE [Concomitant]
     Active Substance: POSACONAZOLE
     Indication: PRODUCT USED FOR UNKNOWN INDICATION
     Dosage: 100 MG, UNK
  4. BACTRIM [Concomitant]
     Active Substance: SULFAMETHOXAZOLE\TRIMETHOPRIM
     Indication: PRODUCT USED FOR UNKNOWN INDICATION
     Dosage: UNK
  5. VALACYCLOVIR [Concomitant]
     Active Substance: VALACYCLOVIR HYDROCHLORIDE
     Indication: PRODUCT USED FOR UNKNOWN INDICATION
     Dosage: UNK
  6. PANTOPRAZOLE [Concomitant]
     Active Substance: PANTOPRAZOLE
     Indication: PRODUCT USED FOR UNKNOWN INDICATION
     Dosage: UNK
  7. ALBUTEROL. [Concomitant]
     Active Substance: ALBUTEROL
     Indication: PRODUCT USED FOR UNKNOWN INDICATION
     Dosage: UNK
  8. INVESTIGATIONAL DRUG [Suspect]
     Active Substance: INVESTIGATIONAL PRODUCT
     Indication: ACUTE MYELOID LEUKAEMIA
     Dosage: 120 MG, QD
     Route: 048
     Dates: start: 20170414, end: 20170427
  9. INVESTIGATIONAL DRUG [Suspect]
     Active Substance: INVESTIGATIONAL PRODUCT
     Dosage: 120 MG, QD
     Route: 048
     Dates: start: 20170802, end: 20171108
  10. IDARUBICIN [Suspect]
     Active Substance: IDARUBICIN
     Indication: ACUTE MYELOID LEUKAEMIA
     Dosage: 12 MG/M2, QD
     Route: 042
     Dates: start: 20170411, end: 20170415

REACTIONS (2)
  - Anaemia [Recovering/Resolving]
  - Presyncope [Recovering/Resolving]

NARRATIVE: CASE EVENT DATE: 20171111
